FAERS Safety Report 21212933 (Version 2)
Quarter: 2022Q3

REPORT INFORMATION
  Report Type: Report from Study
  Country: US (occurrence: US)
  Receive Date: 20220815
  Receipt Date: 20220919
  Transmission Date: 20221027
  Serious: Yes (Other)
  Sender: FDA-Public Use
  Company Number: US-BAYER-2022A111577

PATIENT
  Age: 51 Year
  Sex: Female

DRUGS (2)
  1. STIVARGA [Suspect]
     Active Substance: REGORAFENIB
     Indication: Gallbladder cancer
     Dosage: 160 MG, QD DAILY ON DAY 1-21, OF EACH 28 DAY CYCLE
     Route: 048
     Dates: start: 20220604
  2. STIVARGA [Suspect]
     Active Substance: REGORAFENIB
     Indication: Gallbladder cancer
     Dosage: 80 MG, QD
     Dates: start: 20220807

REACTIONS (8)
  - Gait inability [None]
  - Pain in extremity [Recovering/Resolving]
  - Skin exfoliation [Recovering/Resolving]
  - Dry skin [Recovering/Resolving]
  - Skin exfoliation [Recovering/Resolving]
  - Paraesthesia [None]
  - Off label use [None]
  - Blister [None]

NARRATIVE: CASE EVENT DATE: 20220701
